FAERS Safety Report 14015004 (Version 1)
Quarter: 2017Q3

REPORT INFORMATION
  Report Type: Other
  Country: IN (occurrence: IN)
  Receive Date: 20170927
  Receipt Date: 20170927
  Transmission Date: 20171128
  Serious: Yes (Death)
  Sender: FDA-Public Use
  Company Number: IN--2017-IN-000071

PATIENT
  Age: 60 Year
  Sex: Male

DRUGS (2)
  1. METRONIDAZOLE BRAND UNSPECIFIED (VIVIMED) [Suspect]
     Active Substance: METRONIDAZOLE
     Indication: NECROTISING SOFT TISSUE INFECTION
  2. PIPERACILLIN AND TAZOBACTAM [Suspect]
     Active Substance: PIPERACILLIN SODIUM\TAZOBACTAM SODIUM
     Indication: NECROTISING SOFT TISSUE INFECTION

REACTIONS (3)
  - Drug ineffective [Not Recovered/Not Resolved]
  - Sepsis [Fatal]
  - Metabolic acidosis [Unknown]
